FAERS Safety Report 9084006 (Version 1)
Quarter: 2013Q1

REPORT INFORMATION
  Report Type: Report from Study
  Country: US (occurrence: US)
  Receive Date: 20130131
  Receipt Date: 20130131
  Transmission Date: 20140127
  Serious: No
  Sender: FDA-Public Use
  Company Number: US-ABBOTT-12P-163-0999569-00

PATIENT
  Sex: Female
  Weight: 65.83 kg

DRUGS (7)
  1. HUMIRA [Suspect]
     Indication: COLITIS ULCERATIVE
     Route: 058
     Dates: start: 201205
  2. MULTIVITAMIN [Concomitant]
     Indication: PROPHYLAXIS
  3. VITAMIN E [Concomitant]
     Indication: PROPHYLAXIS
  4. CALCIUM [Concomitant]
     Indication: PRODUCT USED FOR UNKNOWN INDICATION
  5. VITAMIN C [Concomitant]
     Indication: PROPHYLAXIS
  6. IMODIUM [Concomitant]
     Indication: PROPHYLAXIS
  7. IMODIUM [Concomitant]
     Indication: DIARRHOEA

REACTIONS (3)
  - Lip swelling [Not Recovered/Not Resolved]
  - Swelling [Not Recovered/Not Resolved]
  - Hypersensitivity [Not Recovered/Not Resolved]
